FAERS Safety Report 11295558 (Version 1)
Quarter: 2015Q3

REPORT INFORMATION
  Report Type: Spontaneous
  Country: US (occurrence: None)
  Receive Date: 20150722
  Receipt Date: 20150722
  Transmission Date: 20151125
  Serious: Yes (Life-Threatening)
  Sender: FDA-Public Use
  Company Number: None

PATIENT
  Age: 60 Year
  Sex: Male
  Weight: 70 kg

DRUGS (1)
  1. SUCCINYLCHOLINE [Suspect]
     Active Substance: SUCCINYLCHOLINE
     Route: 042
     Dates: start: 20110120, end: 20110120

REACTIONS (2)
  - Delayed recovery from anaesthesia [None]
  - Toxicity to various agents [None]

NARRATIVE: CASE EVENT DATE: 20110121
